FAERS Safety Report 13188514 (Version 1)
Quarter: 2017Q1

REPORT INFORMATION
  Report Type: Spontaneous
  Country: US (occurrence: US)
  Receive Date: 20170203
  Receipt Date: 20170203
  Transmission Date: 20170428
  Serious: Yes (Life-Threatening, Hospitalization, Disabling, Other)
  Sender: FDA-Public Use
  Company Number: None

PATIENT
  Age: 57 Year
  Sex: Male
  Weight: 112.5 kg

DRUGS (11)
  1. AMBEIN [Concomitant]
  2. NITRO [Concomitant]
     Active Substance: NITROGLYCERIN
  3. CALCIUM [Concomitant]
     Active Substance: CALCIUM
  4. INVOKANA [Suspect]
     Active Substance: CANAGLIFLOZIN
     Indication: DIABETES MELLITUS
     Dosage: ?          QUANTITY:1 TABLET(S);?
     Route: 048
     Dates: start: 20140201, end: 20140715
  5. BAYER [Concomitant]
     Active Substance: ASPIRIN
  6. CYMBALTA [Concomitant]
     Active Substance: DULOXETINE HYDROCHLORIDE
  7. ROSUVASTATIN. [Concomitant]
     Active Substance: ROSUVASTATIN
  8. FLUTICASONE PROPIONATE. [Concomitant]
     Active Substance: FLUTICASONE PROPIONATE
  9. INSULIN [Concomitant]
     Active Substance: INSULIN NOS
  10. METOMORPHINE [Concomitant]
  11. NUEROTIN [Concomitant]

REACTIONS (13)
  - Ear haemorrhage [None]
  - Ketoacidosis [None]
  - Meningitis [None]
  - Cardiac disorder [None]
  - Drug interaction [None]
  - Pharyngeal haemorrhage [None]
  - Nervous system disorder [None]
  - Thirst [None]
  - Retinal haemorrhage [None]
  - Diplopia [None]
  - Hallucination [None]
  - Syncope [None]
  - Arrhythmia [None]

NARRATIVE: CASE EVENT DATE: 20140309
